FAERS Safety Report 20404035 (Version 1)
Quarter: 2022Q1

REPORT INFORMATION
  Report Type: Spontaneous
  Country: US (occurrence: US)
  Receive Date: 20220131
  Receipt Date: 20220131
  Transmission Date: 20220423
  Serious: Yes (Other)
  Sender: FDA-Public Use
  Company Number: US-STRIDES ARCOLAB LIMITED-2021SP027293

PATIENT
  Sex: Male

DRUGS (4)
  1. CALCITRIOL [Suspect]
     Active Substance: CALCITRIOL
     Indication: Fibrous dysplasia of bone
     Dosage: UNK
     Route: 048
  2. CALCITRIOL [Suspect]
     Active Substance: CALCITRIOL
     Indication: Albright^s disease
     Dosage: 80 NANOGRAM PER KILOGRAM DAILY
     Route: 048
  3. PHOSPHORUS [Suspect]
     Active Substance: PHOSPHORUS
     Indication: Fibrous dysplasia of bone
     Dosage: UNK
     Route: 048
  4. PHOSPHORUS [Suspect]
     Active Substance: PHOSPHORUS
     Indication: Albright^s disease
     Dosage: 55 MILLIGRAM/KILOGRAM DAILY
     Route: 048

REACTIONS (5)
  - Nephrocalcinosis [Unknown]
  - Hypercalciuria [Unknown]
  - Malabsorption [Unknown]
  - Gastrointestinal disorder [Unknown]
  - Off label use [Unknown]
